FAERS Safety Report 9242650 (Version 1)
Quarter: 2013Q2

REPORT INFORMATION
  Report Type: Spontaneous
  Country: US (occurrence: US)
  Receive Date: 20130419
  Receipt Date: 20130419
  Transmission Date: 20140414
  Serious: Yes (Hospitalization)
  Sender: FDA-Public Use
  Company Number: US-JNJFOC-20130407366

PATIENT
  Sex: Female

DRUGS (1)
  1. PANCREAZE [Suspect]
     Indication: CYSTIC FIBROSIS
     Dosage: 6 CAPSULES WITH MEALS
     Route: 048

REACTIONS (2)
  - Abdominal hernia [Unknown]
  - Aspiration [Unknown]
